FAERS Safety Report 8313783-5 (Version None)
Quarter: 2012Q2

REPORT INFORMATION
  Report Type: 
  Country: None (occurrence: None)
  Receive Date: 20120426
  Receipt Date: 20120423
  Transmission Date: 20120825
  Serious: Yes (Other)
  Sender: FDA-Public Use
  Company Number: FR-JNJFOC-20120408936

PATIENT

DRUGS (6)
  1. DOXORUBICIN HCL [Suspect]
     Indication: T-CELL LYMPHOMA
     Route: 042
  2. PREDNISONE [Suspect]
     Indication: T-CELL LYMPHOMA
     Route: 065
  3. ROMIDEPSIN [Suspect]
     Indication: T-CELL LYMPHOMA
     Dosage: ESCALATING DOSES
     Route: 065
  4. VINCRISTINE [Suspect]
     Indication: T-CELL LYMPHOMA
     Route: 065
  5. CYCLOPHOSPHAMIDE [Suspect]
     Indication: T-CELL LYMPHOMA
     Route: 065
  6. ROMIDEPSIN [Suspect]
     Route: 065

REACTIONS (6)
  - THROMBOCYTOPENIA [None]
  - NEUTROPENIA [None]
  - DYSPEPSIA [None]
  - ELECTROCARDIOGRAM QT PROLONGED [None]
  - ADVERSE EVENT [None]
  - HEPATIC ENZYME INCREASED [None]
